FAERS Safety Report 8351401-0 (Version None)
Quarter: 2012Q2

REPORT INFORMATION
  Report Type: 
  Country: None (occurrence: None)
  Receive Date: 20120510
  Receipt Date: 20120501
  Transmission Date: 20120825
  Serious: Yes (Other)
  Sender: FDA-Public Use
  Company Number: US-ASTRAZENECA-2012SE28209

PATIENT
  Age: 70 Year
  Sex: Male
  Weight: 72.6 kg

DRUGS (7)
  1. SYMBICORT [Suspect]
     Indication: ASTHMA
     Dosage: UNKNOWN, ONE PUFF IN THE MORNING AND ONE PUFF AT NIGHT
     Route: 055
  2. NAMENDA [Concomitant]
     Indication: DEMENTIA ALZHEIMER'S TYPE
  3. ZOLOFT [Concomitant]
  4. EXOLENT [Concomitant]
     Indication: DEMENTIA ALZHEIMER'S TYPE
  5. LAMOTRIGINE [Concomitant]
     Indication: DYSKINESIA
  6. SINGULAIR [Concomitant]
     Indication: ASTHMA
  7. ACCUPRIL [Concomitant]
     Indication: HYPERTENSION

REACTIONS (4)
  - DYSKINESIA [None]
  - OFF LABEL USE [None]
  - INTENTIONAL DRUG MISUSE [None]
  - DEMENTIA ALZHEIMER'S TYPE [None]
